FAERS Safety Report 7981257-7 (Version None)
Quarter: 2011Q4

REPORT INFORMATION
  Report Type: 
  Country: None (occurrence: None)
  Receive Date: 20111215
  Receipt Date: 20111212
  Transmission Date: 20120403
  Serious: No
  Sender: FDA-Public Use
  Company Number: US-PFIZER INC-2011302354

PATIENT
  Sex: Male
  Weight: 88.435 kg

DRUGS (4)
  1. VIAGRA [Suspect]
     Indication: ERECTILE DYSFUNCTION
     Dosage: 100 MG, AS NEEDED
     Dates: start: 20110601
  2. CIALIS [Interacting]
     Dosage: UNK
  3. LIPITOR [Suspect]
     Indication: BLOOD CHOLESTEROL INCREASED
     Dosage: 80 MG, 1X/DAY
     Route: 048
     Dates: start: 20040101, end: 20100101
  4. LIPITOR [Suspect]
     Dosage: 40 MG, 1X/DAY
     Route: 048
     Dates: start: 20100101, end: 20110901

REACTIONS (6)
  - DRUG INEFFECTIVE [None]
  - MUSCLE STRAIN [None]
  - ARTHRITIS [None]
  - PAIN IN EXTREMITY [None]
  - DRUG INTERACTION [None]
  - MYALGIA [None]
